FAERS Safety Report 12372956 (Version 1)
Quarter: 2016Q2

REPORT INFORMATION
  Report Type: Report from Study
  Country: US (occurrence: US)
  Receive Date: 20160516
  Receipt Date: 20160516
  Transmission Date: 20160815
  Serious: Yes (Death, Other)
  Sender: FDA-Public Use
  Company Number: US-BAYER-2016-034168

PATIENT
  Age: 69 Year
  Sex: Female
  Weight: 52.15 kg

DRUGS (4)
  1. ADEMPAS [Suspect]
     Active Substance: RIOCIGUAT
     Indication: PULMONARY HYPERTENSION
     Dosage: 1 MG, TID
     Route: 048
  2. ADEMPAS [Suspect]
     Active Substance: RIOCIGUAT
     Indication: PULMONARY HYPERTENSION
     Dosage: 0.5 MG, TID
     Route: 048
  3. ADEMPAS [Suspect]
     Active Substance: RIOCIGUAT
     Indication: PULMONARY HYPERTENSION
     Dosage: UNK
     Dates: start: 20160113
  4. OPSUMIT [Concomitant]
     Active Substance: MACITENTAN

REACTIONS (5)
  - Enterocolitis infectious [Unknown]
  - Death [Fatal]
  - Diarrhoea [Unknown]
  - Colon operation [Unknown]
  - Dry skin [Unknown]

NARRATIVE: CASE EVENT DATE: 20160215
